FAERS Safety Report 11538075 (Version 2)
Quarter: 2015Q4

REPORT INFORMATION
  Report Type: Spontaneous
  Country: US (occurrence: US)
  Receive Date: 20150922
  Receipt Date: 20151202
  Transmission Date: 20160304
  Serious: No
  Sender: FDA-Public Use
  Company Number: US-MALLINCKRODT-T201501585

PATIENT
  Age: 58 Year
  Sex: Male
  Weight: 95 kg

DRUGS (11)
  1. TYLENOL [Concomitant]
     Active Substance: ACETAMINOPHEN
     Indication: PRODUCT USED FOR UNKNOWN INDICATION
     Route: 005
  2. AMLODIPINE [Concomitant]
     Active Substance: AMLODIPINE BESYLATE
     Indication: PRODUCT USED FOR UNKNOWN INDICATION
     Route: 065
  3. NOVOLOG [Concomitant]
     Active Substance: INSULIN ASPART
     Indication: PRODUCT USED FOR UNKNOWN INDICATION
     Route: 065
  4. ATENOLOL. [Concomitant]
     Active Substance: ATENOLOL
     Indication: PRODUCT USED FOR UNKNOWN INDICATION
     Route: 065
  5. OXYCODONE [Concomitant]
     Active Substance: OXYCODONE
     Indication: PRODUCT USED FOR UNKNOWN INDICATION
     Route: 065
  6. KIT FOR THE PREPARATION OF TECHNETIUM (TC-99M) SESTAMIBI INJECTION [Suspect]
     Active Substance: TECHNETIUM TC-99M
     Indication: CARDIAC STRESS TEST
     Dosage: UNK
     Route: 042
     Dates: start: 20150310, end: 20150310
  7. TRAMADOL. [Concomitant]
     Active Substance: TRAMADOL
     Indication: PRODUCT USED FOR UNKNOWN INDICATION
     Route: 065
  8. ZOFRAN [Concomitant]
     Active Substance: ONDANSETRON HYDROCHLORIDE
     Indication: PRODUCT USED FOR UNKNOWN INDICATION
     Route: 065
  9. ULTRA-TECHNEKOW DTE [Suspect]
     Active Substance: MOLYBDENUM MO-99\TECHNETIUM TC-99M
     Indication: CARDIAC STRESS TEST
     Dosage: 10.5 MCI, SINGLE
     Route: 042
     Dates: start: 20150310, end: 20150310
  10. GLUCAGON. [Concomitant]
     Active Substance: GLUCAGON
     Indication: PRODUCT USED FOR UNKNOWN INDICATION
     Route: 065
  11. NICOTINE. [Concomitant]
     Active Substance: NICOTINE

REACTIONS (2)
  - Pruritus generalised [Recovered/Resolved]
  - Skin burning sensation [Recovered/Resolved]

NARRATIVE: CASE EVENT DATE: 20150310
